FAERS Safety Report 4680379-6 (Version None)
Quarter: 2005Q2

REPORT INFORMATION
  Report Type: 
  Country: None (occurrence: None)
  Receive Date: 20050601
  Receipt Date: 20050516
  Transmission Date: 20051028
  Serious: Yes (Hospitalization)
  Sender: FDA-Public Use
  Company Number: 2005PL000037

PATIENT
  Age: 42 Year
  Sex: Female

DRUGS (3)
  1. ALLOPURINOL [Suspect]
     Indication: GOUT
     Dosage: PO
     Route: 048
  2. GLUCAGON [Concomitant]
  3. CILAZAPRIL [Concomitant]

REACTIONS (5)
  - CONJUNCTIVITIS [None]
  - DYSPHAGIA [None]
  - STAPHYLOCOCCAL INFECTION [None]
  - SWELLING FACE [None]
  - TOXIC EPIDERMAL NECROLYSIS [None]
